FAERS Safety Report 20936224 (Version 2)
Quarter: 2022Q3

REPORT INFORMATION
  Report Type: Other
  Country: US (occurrence: None)
  Receive Date: 20220609
  Receipt Date: 20220823
  Transmission Date: 20221027
  Serious: Yes (Hospitalization)
  Sender: FDA-Public Use
  Company Number: US-ROCHE-3112878

PATIENT
  Age: 46 Year
  Sex: Female
  Weight: 145.28 kg

DRUGS (3)
  1. OCREVUS [Suspect]
     Active Substance: OCRELIZUMAB
     Indication: Relapsing-remitting multiple sclerosis
     Dosage: INFUSE 300MG INTRAVENOUSLY ON DAYS 0 AND 14 THEN INFUSE 600MG INTRAVENOUSLY EVERY 6 MONTHS
     Route: 042
     Dates: start: 20211227
  2. METFORMIN [Concomitant]
     Active Substance: METFORMIN HYDROCHLORIDE
  3. AUBAGIO [Concomitant]
     Active Substance: TERIFLUNOMIDE

REACTIONS (6)
  - COVID-19 [Unknown]
  - Pneumonia [Unknown]
  - Memory impairment [Not Recovered/Not Resolved]
  - Dysgraphia [Not Recovered/Not Resolved]
  - Movement disorder [Not Recovered/Not Resolved]
  - Pain [Not Recovered/Not Resolved]

NARRATIVE: CASE EVENT DATE: 20220101
